FAERS Safety Report 5768692-2 (Version None)
Quarter: 2008Q2

REPORT INFORMATION
  Report Type: 
  Country: None (occurrence: None)
  Receive Date: 20080612
  Receipt Date: 20080516
  Transmission Date: 20081010
  Serious: No
  Sender: FDA-Public Use
  Company Number: US-BOEHRINGER INGELHEIM GMBH, GERMANY-2008-BP-07687BP

PATIENT
  Sex: Female

DRUGS (3)
  1. ZANTAC 150 [Suspect]
     Indication: GASTROOESOPHAGEAL REFLUX DISEASE
     Route: 048
     Dates: start: 20080515
  2. MICARDIS/HCTZ [Concomitant]
  3. CLESTOR [Concomitant]

REACTIONS (3)
  - DEHYDRATION [None]
  - DRY THROAT [None]
  - DYSGEUSIA [None]
